FAERS Safety Report 15646934 (Version 1)
Quarter: 2018Q4

REPORT INFORMATION
  Report Type: Report from Study
  Country: None (occurrence: BR)
  Receive Date: 20181122
  Receipt Date: 20181122
  Transmission Date: 20190205
  Serious: Yes (Disabling)
  Sender: FDA-Public Use
  Company Number: BR-ABBVIE-18K-020-2563874-00

PATIENT
  Age: 55 Year
  Sex: Female

DRUGS (1)
  1. HUMIRA [Suspect]
     Active Substance: ADALIMUMAB
     Indication: ANKYLOSING SPONDYLITIS
     Route: 058
     Dates: start: 20171212

REACTIONS (3)
  - Gait inability [Unknown]
  - Mobility decreased [Unknown]
  - Ankylosing spondylitis [Unknown]

NARRATIVE: CASE EVENT DATE: 201803
